FAERS Safety Report 7078708-1 (Version None)
Quarter: 2010Q4

REPORT INFORMATION
  Report Type: 
  Country: None (occurrence: None)
  Receive Date: 20101102
  Receipt Date: 20101021
  Transmission Date: 20110411
  Serious: Yes (Hospitalization, Other)
  Sender: FDA-Public Use
  Company Number: DK-JNJFOC-20100905537

PATIENT
  Age: 81 Year
  Sex: Male

DRUGS (1)
  1. TAVANIC [Suspect]
     Indication: INFECTION
     Route: 065

REACTIONS (7)
  - ARTHRALGIA [None]
  - DIZZINESS [None]
  - GAIT DISTURBANCE [None]
  - JOINT INJURY [None]
  - PAIN IN EXTREMITY [None]
  - TENDON RUPTURE [None]
  - TENDONITIS [None]
